FAERS Safety Report 5566739-X (Version None)
Quarter: 2007Q4

REPORT INFORMATION
  Report Type: 
  Country: None (occurrence: None)
  Receive Date: 20071219
  Receipt Date: 20071211
  Transmission Date: 20080405
  Serious: Yes (Other)
  Sender: FDA-Public Use
  Company Number: US-JNJFOC-20070405199

PATIENT
  Sex: Male
  Weight: 85 kg

DRUGS (2)
  1. REMICADE [Suspect]
     Indication: SARCOIDOSIS
     Dosage: 9 INFUSIONS
     Route: 042
  2. METHOTREXATE [Concomitant]

REACTIONS (1)
  - MYCOSIS FUNGOIDES [None]
